FAERS Safety Report 9493705 (Version 2)
Quarter: 2013Q3

REPORT INFORMATION
  Report Type: Spontaneous
  Country: JP (occurrence: JP)
  Receive Date: 20130902
  Receipt Date: 20130913
  Transmission Date: 20140515
  Serious: Yes (Death, Hospitalization)
  Sender: FDA-Public Use
  Company Number: JP-JNJFOC-20130816931

PATIENT
  Age: 79 Year
  Sex: Male
  Weight: 51 kg

DRUGS (15)
  1. XARELTO [Suspect]
     Indication: CEREBROVASCULAR ACCIDENT PROPHYLAXIS
     Route: 048
     Dates: start: 20130705, end: 20130713
  2. XARELTO [Suspect]
     Indication: ATRIAL FIBRILLATION
     Route: 048
     Dates: start: 20130705, end: 20130713
  3. MAINTATE [Concomitant]
     Indication: ATRIAL FIBRILLATION
     Route: 048
     Dates: start: 20130705, end: 20130713
  4. AMLODIPINE [Concomitant]
     Indication: HYPERTENSION
     Route: 048
  5. BLOPRESS [Concomitant]
     Indication: HYPERTENSION
     Route: 048
  6. OMEPRAZOLE [Concomitant]
     Indication: GASTRITIS
     Route: 048
  7. MUCOSTA [Concomitant]
     Indication: GASTRITIS
     Route: 048
  8. U-PAN (LORAZEPAM) [Concomitant]
     Indication: INSOMNIA
     Route: 048
     Dates: end: 20130713
  9. SENNARIDE [Concomitant]
     Indication: CONSTIPATION
     Route: 048
     Dates: end: 20130713
  10. MAGNESIUM OXIDE [Concomitant]
     Indication: CONSTIPATION
     Route: 048
     Dates: end: 20130713
  11. ONBREZ [Concomitant]
     Indication: EMPHYSEMA
     Route: 055
     Dates: start: 20130712, end: 20130713
  12. SYMBICORT [Concomitant]
     Indication: EMPHYSEMA
     Route: 055
     Dates: start: 20130712, end: 20130713
  13. HUSCODE [Concomitant]
     Indication: COUGH
     Route: 048
     Dates: start: 20130712, end: 20130713
  14. CODEINE PHOSPHATE [Concomitant]
     Indication: COUGH
     Route: 048
     Dates: start: 20130712, end: 20130713
  15. SPIRIVA [Concomitant]
     Indication: EMPHYSEMA
     Route: 055
     Dates: start: 201306

REACTIONS (1)
  - Interstitial lung disease [Fatal]
